FAERS Safety Report 15949995 (Version 2)
Quarter: 2019Q2

REPORT INFORMATION
  Report Type: Report from Study
  Country: DE (occurrence: DE)
  Receive Date: 20190211
  Receipt Date: 20190411
  Transmission Date: 20190711
  Serious: Yes (Hospitalization)
  Sender: FDA-Public Use
  Company Number: DE-EMD SERONO-9069319

PATIENT
  Age: 29 Year
  Sex: Female

DRUGS (2)
  1. REBIF [Suspect]
     Active Substance: INTERFERON BETA-1A
     Indication: MULTIPLE SCLEROSIS
     Route: 058
     Dates: start: 201010
  2. DEKRISTOL [Concomitant]
     Active Substance: CHOLECALCIFEROL
     Indication: PRODUCT USED FOR UNKNOWN INDICATION
     Dosage: 20000 (UNSPECIFIED UNITS)

REACTIONS (10)
  - White blood cell count decreased [Unknown]
  - Multiple sclerosis relapse [Unknown]
  - Chills [Unknown]
  - Feeling abnormal [Unknown]
  - Natural killer cell count decreased [Unknown]
  - Decreased appetite [Not Recovered/Not Resolved]
  - Dyspepsia [Not Recovered/Not Resolved]
  - Peripheral swelling [Not Recovered/Not Resolved]
  - Red blood cell sedimentation rate abnormal [Unknown]
  - Impaired work ability [Unknown]

NARRATIVE: CASE EVENT DATE: 201808
